FAERS Safety Report 11201658 (Version 1)
Quarter: 2015Q2

REPORT INFORMATION
  Report Type: Spontaneous
  Country: US (occurrence: None)
  Receive Date: 20150617
  Receipt Date: 20150617
  Transmission Date: 20150821
  Serious: Yes (Hospitalization)
  Sender: FDA-Public Use
  Company Number: None

PATIENT
  Age: 64 Year
  Sex: Female
  Weight: 98.4 kg

DRUGS (1)
  1. CYTARABINE. [Suspect]
     Active Substance: CYTARABINE
     Dates: end: 20150530

REACTIONS (4)
  - Pulmonary oedema [None]
  - Hypoxia [None]
  - Tachypnoea [None]
  - Lung infiltration [None]

NARRATIVE: CASE EVENT DATE: 20150602
